FAERS Safety Report 14366110 (Version 1)
Quarter: 2018Q1

REPORT INFORMATION
  Report Type: Spontaneous
  Country: FR (occurrence: FR)
  Receive Date: 20180109
  Receipt Date: 20180109
  Transmission Date: 20180509
  Serious: Yes (Other)
  Sender: FDA-Public Use
  Company Number: FR-AXELLIA-001279

PATIENT
  Age: 26 Year
  Sex: Male

DRUGS (6)
  1. CICLOSPORIN [Suspect]
     Active Substance: CYCLOSPORINE
     Indication: IMMUNOSUPPRESSION
     Dosage: LAST DOSE ADMINISTERED ON 14-NOV-2017 (23 DAYS)
     Route: 048
     Dates: start: 20171022
  2. CASPOFUNGIN [Suspect]
     Active Substance: CASPOFUNGIN
     Indication: FUNGAL INFECTION
     Dosage: LAST DOSE ADMINISTERED ON 14-NOV-2017 (18 DAYS)
     Route: 042
     Dates: start: 20171027
  3. PANTOPRAZOLE [Suspect]
     Active Substance: PANTOPRAZOLE
     Indication: PROPHYLAXIS AGAINST GASTROINTESTINAL ULCER
     Dosage: LAST DOSE ADMINISTERED ON 14-NOV-2017 (30 DAYS)
     Route: 048
     Dates: start: 20171015
  4. VANCOMYCIN [Suspect]
     Active Substance: VANCOMYCIN
     Indication: INFECTION
     Route: 042
     Dates: start: 20171022, end: 20171101
  5. CELLCEPT [Suspect]
     Active Substance: MYCOPHENOLATE MOFETIL\MYCOPHENOLATE MOFETIL HYDROCHLORIDE
     Indication: IMMUNOSUPPRESSION
     Dosage: LAST DOSE ADMINISTERED ON 14-NOV-2017 (23 DAYS)
     Route: 048
     Dates: start: 20171022
  6. TIENAM [Suspect]
     Active Substance: CILASTATIN SODIUM\IMIPENEM
     Indication: INFECTION
     Dosage: LAST DOSE ADMINISTERED ON 14-NOV-2017 (18 DAYS)
     Route: 042
     Dates: start: 20171027

REACTIONS (1)
  - Toxic skin eruption [Recovered/Resolved]

NARRATIVE: CASE EVENT DATE: 20171103
